FAERS Safety Report 7449547-4 (Version None)
Quarter: 2011Q2

REPORT INFORMATION
  Report Type: 
  Country: None (occurrence: None)
  Receive Date: 20110502
  Receipt Date: 20110425
  Transmission Date: 20111010
  Serious: Yes (Other)
  Sender: FDA-Public Use
  Company Number: US-BAYER-2011-036283

PATIENT
  Age: 59 Year
  Sex: Male
  Weight: 91 kg

DRUGS (3)
  1. BRONKAID [Suspect]
     Dosage: UNK
     Route: 048
  2. ANTIDEPRESSANTS [Concomitant]
  3. FEXOFENADINE [Concomitant]

REACTIONS (7)
  - AGGRESSION [None]
  - SLEEP DISORDER [None]
  - DRUG ABUSER [None]
  - TOBACCO USER [None]
  - ALCOHOL USE [None]
  - INSOMNIA [None]
  - DRUG DEPENDENCE [None]
